FAERS Safety Report 7467207-0 (Version None)
Quarter: 2011Q2

REPORT INFORMATION
  Report Type: 
  Country: None (occurrence: None)
  Receive Date: 20110509
  Receipt Date: 20110419
  Transmission Date: 20111010
  Serious: Yes (Hospitalization)
  Sender: FDA-Public Use
  Company Number: US-BAYER-201037362NA

PATIENT
  Age: 48 Year
  Sex: Female
  Weight: 126.53 kg

DRUGS (15)
  1. RHINOCORT [Concomitant]
     Route: 045
  2. ZYRTEC [Concomitant]
     Indication: HYPERSENSITIVITY
     Dosage: 10 MG, QD
     Route: 048
     Dates: start: 19980101, end: 20080101
  3. EPINEPHRINE [Concomitant]
     Dosage: UNK
     Dates: start: 20000101
  4. YASMIN [Suspect]
     Indication: ORAL CONTRACEPTION
     Route: 048
  5. COLACE [Concomitant]
     Route: 048
  6. TRIAMPTERINE [Concomitant]
     Indication: OEDEMA
     Dosage: 37.5 MG, OM
     Route: 048
     Dates: start: 20010101
  7. VALIUM [Concomitant]
     Indication: ANXIETY
     Dosage: 5 MG, TID
     Route: 048
     Dates: start: 20020101, end: 20040101
  8. NASACORT [Concomitant]
     Indication: HYPERSENSITIVITY
     Dosage: UNK
     Route: 045
     Dates: start: 20020101, end: 20050101
  9. YASMIN [Suspect]
     Indication: PREMENSTRUAL SYNDROME
  10. MULTI-VITAMIN [Concomitant]
     Route: 048
  11. VERAPAMIL [Concomitant]
     Indication: ARRHYTHMIA
     Dosage: 240 MG, OM
     Route: 048
     Dates: start: 19990101
  12. CELEBREX [Concomitant]
     Dosage: 200 MG, OM
     Route: 048
     Dates: start: 20010101, end: 20050101
  13. PREVACID [Concomitant]
     Dosage: UNK
     Route: 048
     Dates: start: 20060101, end: 20100101
  14. YASMIN [Suspect]
     Indication: UTERINE HAEMORRHAGE
  15. ACCOLATE [Concomitant]
     Dosage: 10 MG, BID
     Route: 048
     Dates: start: 19980101, end: 20050101

REACTIONS (5)
  - DEEP VEIN THROMBOSIS [None]
  - PAIN [None]
  - ANXIETY [None]
  - EMOTIONAL DISTRESS [None]
  - PULMONARY EMBOLISM [None]
